FAERS Safety Report 4888123-4 (Version None)
Quarter: 2006Q1

REPORT INFORMATION
  Report Type: 
  Country: None (occurrence: None)
  Receive Date: 20060123
  Receipt Date: 20060110
  Transmission Date: 20060701
  Serious: Yes (Death)
  Sender: FDA-Public Use
  Company Number: US-MERCK-0601USA01353

PATIENT
  Age: 79 Year
  Sex: Female
  Weight: 55 kg

DRUGS (4)
  1. VIOXX [Suspect]
     Indication: OSTEOPOROSIS
     Route: 048
  2. FOSAMAX [Concomitant]
     Route: 065
  3. PROPRANOLOL HYDROCHLORIDE [Concomitant]
     Route: 065
  4. FERROUS SULFATE [Concomitant]
     Route: 065

REACTIONS (5)
  - ANAEMIA [None]
  - CARDIOMYOPATHY [None]
  - DEATH [None]
  - PELVIC FRACTURE [None]
  - RENAL FAILURE [None]
